FAERS Safety Report 6860872-8 (Version None)
Quarter: 2010Q3

REPORT INFORMATION
  Report Type: 
  Country: None (occurrence: None)
  Receive Date: 20100720
  Receipt Date: 20100708
  Transmission Date: 20110219
  Serious: Yes (Other)
  Sender: FDA-Public Use
  Company Number: US-JNJFOC-20100606966

PATIENT
  Age: 18 Month
  Sex: Male
  Weight: 10.89 kg

DRUGS (2)
  1. CONCENTRATED TYLENOL INFANT DROPS [Suspect]
     Indication: PYREXIA
     Route: 048
  2. CONCENTRATED TYLENOL INFANT DROPS [Suspect]
     Indication: HERPANGINA
     Route: 048

REACTIONS (5)
  - CONVULSION [None]
  - DRUG INEFFECTIVE [None]
  - PRODUCT LOT NUMBER ISSUE [None]
  - PRODUCT QUALITY ISSUE [None]
  - PYREXIA [None]
